FAERS Safety Report 22963623 (Version 3)
Quarter: 2023Q4

REPORT INFORMATION
  Report Type: Spontaneous
  Country: US (occurrence: US)
  Receive Date: 20230921
  Receipt Date: 20231025
  Transmission Date: 20240109
  Serious: Yes (Other)
  Sender: FDA-Public Use
  Company Number: US-JNJFOC-20230925185

PATIENT
  Age: 74 Year
  Sex: Male

DRUGS (5)
  1. BALVERSA [Suspect]
     Active Substance: ERDAFITINIB
     Indication: Product used for unknown indication
     Route: 048
     Dates: start: 202302
  2. BALVERSA [Suspect]
     Active Substance: ERDAFITINIB
     Route: 048
  3. BALVERSA [Suspect]
     Active Substance: ERDAFITINIB
     Route: 048
  4. BALVERSA [Suspect]
     Active Substance: ERDAFITINIB
     Route: 048
  5. KEYTRUDA [Suspect]
     Active Substance: PEMBROLIZUMAB
     Indication: Bladder cancer
     Route: 042
     Dates: start: 202303

REACTIONS (13)
  - Neuropathy peripheral [Unknown]
  - Dry eye [Unknown]
  - Lacrimation increased [Unknown]
  - Nail discolouration [Unknown]
  - Constipation [Unknown]
  - Taste disorder [Recovering/Resolving]
  - Thyroid disorder [Unknown]
  - Fatigue [Not Recovered/Not Resolved]
  - Sleep disorder [Unknown]
  - Nail disorder [Unknown]
  - Onychomadesis [Unknown]
  - Blood thyroid stimulating hormone decreased [Recovering/Resolving]
  - Blood phosphorus increased [Unknown]

NARRATIVE: CASE EVENT DATE: 20230101
